FAERS Safety Report 6534862-9 (Version None)
Quarter: 2010Q1

REPORT INFORMATION
  Report Type: 
  Country: None (occurrence: None)
  Receive Date: 20100112
  Receipt Date: 20100104
  Transmission Date: 20100710
  Serious: Yes (Hospitalization)
  Sender: FDA-Public Use
  Company Number: PHHY2010CA00874

PATIENT
  Sex: Male

DRUGS (1)
  1. ZOMETA [Suspect]
     Indication: TRANSITIONAL CELL CARCINOMA
     Dosage: 4 MG, TIW
     Route: 042
     Dates: start: 20091215

REACTIONS (3)
  - HAEMOGLOBIN DECREASED [None]
  - HIP FRACTURE [None]
  - PAIN [None]
